FAERS Safety Report 5362783-6 (Version None)
Quarter: 2007Q2

REPORT INFORMATION
  Report Type: 
  Country: None (occurrence: None)
  Receive Date: 20070614
  Receipt Date: 20070530
  Transmission Date: 20071010
  Serious: Yes (Other)
  Sender: FDA-Public Use
  Company Number: 100#08#2007-02084

PATIENT
  Age: 71 Year
  Sex: Female

DRUGS (3)
  1. ALPRAZOLAM [Suspect]
     Indication: DEPRESSION
     Route: 048
     Dates: start: 19960101
  2. MAPROTILINE [Suspect]
     Indication: DEPRESSION
     Route: 048
     Dates: start: 19960101
  3. CLOTIAZEPAM (CLOTIAZEPAM) (CLOTIAZEPAM) [Suspect]
     Indication: DEPRESSION
     Route: 048
     Dates: start: 19960101

REACTIONS (2)
  - ANGLE CLOSURE GLAUCOMA [None]
  - BLINDNESS [None]
